FAERS Safety Report 4564670-X (Version None)
Quarter: 2005Q1

REPORT INFORMATION
  Report Type: 
  Country: None (occurrence: None)
  Receive Date: 20050126
  Receipt Date: 20050112
  Transmission Date: 20050727
  Serious: Yes (Other)
  Sender: FDA-Public Use
  Company Number: 2004-00861

PATIENT
  Age: 66 Year
  Sex: Male
  Weight: 77 kg

DRUGS (3)
  1. VELCADE [Suspect]
     Indication: MULTIPLE MYELOMA
     Dosage: SEE IMAGE
     Route: 042
     Dates: start: 20040423, end: 20040827
  2. VELCADE [Suspect]
     Indication: MULTIPLE MYELOMA
     Dosage: SEE IMAGE
     Route: 042
     Dates: start: 20040827, end: 20041112
  3. ZOMETA [Concomitant]

REACTIONS (6)
  - PERIORBITAL OEDEMA [None]
  - POLYNEUROPATHY [None]
  - SWELLING FACE [None]
  - TOXIC SKIN ERUPTION [None]
  - URTICARIA [None]
  - WHITE BLOOD CELL COUNT DECREASED [None]
